FAERS Safety Report 7030458-3 (Version None)
Quarter: 2010Q4

REPORT INFORMATION
  Report Type: 
  Country: None (occurrence: None)
  Receive Date: 20101001
  Receipt Date: 20100305
  Transmission Date: 20110411
  Serious: Yes (Hospitalization, Other)
  Sender: FDA-Public Use
  Company Number: 2010SP014793

PATIENT
  Age: 45 Year
  Sex: Female
  Weight: 99.7913 kg

DRUGS (2)
  1. NUVARING [Suspect]
     Indication: CONTRACEPTION
     Dates: start: 20070302, end: 20080302
  2. TAMIFLU [Concomitant]

REACTIONS (4)
  - DEAFNESS [None]
  - ISCHAEMIC STROKE [None]
  - PNEUMONIA [None]
  - THROMBOSIS [None]
